FAERS Safety Report 8052179-0 (Version None)
Quarter: 2012Q1

REPORT INFORMATION
  Report Type: 
  Country: None (occurrence: None)
  Receive Date: 20120118
  Receipt Date: 20120113
  Transmission Date: 20120608
  Serious: Yes (Other)
  Sender: FDA-Public Use
  Company Number: US-PFIZER INC-2012003467

PATIENT
  Sex: Female

DRUGS (2)
  1. PHENOBARBITAL TAB [Suspect]
     Indication: CONVULSION
     Dosage: UNK
  2. DILANTIN [Suspect]
     Indication: CONVULSION
     Dosage: UNK

REACTIONS (2)
  - CONVULSION [None]
  - GINGIVAL BLEEDING [None]
